FAERS Safety Report 10035688 (Version 1)
Quarter: 2014Q1

REPORT INFORMATION
  Report Type: Spontaneous
  Country: GB (occurrence: GB)
  Receive Date: 20140325
  Receipt Date: 20140325
  Transmission Date: 20141002
  Serious: Yes (Hospitalization)
  Sender: FDA-Public Use
  Company Number: GB-WATSON-2014-05323

PATIENT
  Sex: Male

DRUGS (3)
  1. MIRTAZAPINE (UNKNOWN) [Suspect]
     Indication: PRODUCT USED FOR UNKNOWN INDICATION
     Dosage: UNKNOWN DOSE
     Route: 065
  2. MIRTAZAPINE (UNKNOWN) [Suspect]
     Dosage: 60 MG, BID; 15 MG AT AM, 45 MG AT NIGHT
     Route: 065
  3. MIRTAZAPINE (UNKNOWN) [Suspect]
     Dosage: 45 MG, UNKNOWN
     Route: 065

REACTIONS (2)
  - Blood albumin decreased [Unknown]
  - Overdose [Unknown]
